FAERS Safety Report 4288694-5 (Version None)
Quarter: 2004Q1

REPORT INFORMATION
  Report Type: 
  Country: None (occurrence: None)
  Receive Date: 20040205
  Receipt Date: 20040121
  Transmission Date: 20041129
  Serious: Yes (Hospitalization)
  Sender: FDA-Public Use
  Company Number: CA-SHR-04-020142

PATIENT
  Age: 35 Year
  Sex: Female

DRUGS (3)
  1. BETASERON [Suspect]
     Indication: MULTIPLE SCLEROSIS RELAPSE
     Dosage: 8 MIU,EVERY 2D, SUBCUTANEOUS
     Route: 058
     Dates: start: 19970419
  2. PROZCA (FLUOXETINE HYDROCHLORIDE) [Concomitant]
  3. GRAVOL TAB [Concomitant]

REACTIONS (2)
  - MULTIPLE SCLEROSIS RELAPSE [None]
  - ROAD TRAFFIC ACCIDENT [None]
